FAERS Safety Report 22152958 (Version 1)
Quarter: 2023Q1

REPORT INFORMATION
  Report Type: Report from Study
  Country: EG (occurrence: EG)
  Receive Date: 20230329
  Receipt Date: 20230329
  Transmission Date: 20230417
  Serious: Yes (Other)
  Sender: FDA-Public Use
  Company Number: EG-002147023-NVSC2023EG068932

PATIENT
  Sex: Male

DRUGS (2)
  1. VALSARTAN [Suspect]
     Active Substance: VALSARTAN
     Indication: Cardiac failure
     Dosage: HE TOOK TAREG FOR MORE THAN 10 YEARS
     Route: 048
     Dates: end: 20230315
  2. VALSARTAN [Suspect]
     Active Substance: VALSARTAN
     Indication: Ejection fraction decreased

REACTIONS (6)
  - Ejection fraction decreased [Not Recovered/Not Resolved]
  - Condition aggravated [Unknown]
  - Burning sensation [Unknown]
  - COVID-19 [Unknown]
  - Fatigue [Unknown]
  - Drug ineffective [Not Recovered/Not Resolved]
